FAERS Safety Report 8614501 (Version 2)
Quarter: 2012Q4

REPORT INFORMATION
  Report Type: Spontaneous
  Country: None (occurrence: None)
  Receive Date: 20120601
  Receipt Date: 20120821
  Transmission Date: 20130627
  Serious: Yes (Hospitalization, Other)
  Sender: FDA-Public Use
  Company Number: AUR-APL-2012-02365

PATIENT
  Age: 71 Year
  Sex: Female

DRUGS (11)
  1. RAMIPRIL [Suspect]
     Indication: HYPERTENSION
     Route: 048
  2. SIMVASTATIN [Suspect]
     Indication: HYPERCHOLESTEROLAEMIA
     Route: 048
  3. METFORMIN HYDROCHLORIDE [Suspect]
     Indication: DIABETES MELLITUS
     Route: 048
  4. AMLODIPINE [Suspect]
     Indication: HYPERTENSION
     Route: 048
  5. BISOPROLOL FUMARATE [Suspect]
     Indication: HYPERTENSION
     Route: 048
  6. PANTOPRAZOLE [Suspect]
     Indication: PROPHYLAXIS AGAINST GASTROINTESTINAL ULCER
     Route: 048
  7. LEVOTHYROXINE SODIUM [Suspect]
     Route: 048
  8. ASPIRIN [Suspect]
     Indication: CORONARY ARTERY DISEASE
     Dosage: (100 MG, 1 D), ORAL
     Route: 048
  9. PHENYLPROPANOLAMINE HYDROCHLORIDE [Suspect]
     Indication: CORONARY ARTERY DISEASE
     Dosage: 120 MG (60 MG, 2 IN 1 D), ORAL
     Route: 048
     Dates: start: 20110722, end: 20111104
  10. CLOPIDOGREL [Concomitant]
  11. PLATELET AGGREGATION INHIBITORS (PLATELET AGGREGATION INHIBITORS EXCL. HEPARIN) [Concomitant]

REACTIONS (1)
  - Angioedema [None]
